FAERS Safety Report 7457903-3 (Version None)
Quarter: 2011Q2

REPORT INFORMATION
  Report Type: 
  Country: None (occurrence: None)
  Receive Date: 20110504
  Receipt Date: 20110429
  Transmission Date: 20111010
  Serious: Yes (Other)
  Sender: FDA-Public Use
  Company Number: US-PFIZER INC-2011093777

PATIENT
  Sex: Female

DRUGS (1)
  1. CHANTIX [Suspect]
     Dosage: UNK
     Dates: start: 20090301

REACTIONS (5)
  - CERVICAL VERTEBRAL FRACTURE [None]
  - NECK PAIN [None]
  - BACK PAIN [None]
  - SYNCOPE [None]
  - FALL [None]
